FAERS Safety Report 16995423 (Version 1)
Quarter: 2019Q4

REPORT INFORMATION
  Report Type: Spontaneous
  Country: US (occurrence: US)
  Receive Date: 20190923
  Receipt Date: 20190923
  Transmission Date: 20200122
  Serious: Yes (Disabling, Other)
  Sender: FDA-Public Use
  Company Number: None

PATIENT
  Age: 67 Year
  Sex: Female
  Weight: 49.9 kg

DRUGS (1)
  1. PROLIA [Suspect]
     Active Substance: DENOSUMAB
     Indication: OSTEOPOROSIS
     Dosage: ?          OTHER FREQUENCY:1 EVERY 6 MONTHS;OTHER ROUTE:SKIN INFUSION (A SHOT IN THE ABDOMEN)?
     Dates: start: 20190315

REACTIONS (22)
  - Contusion [None]
  - Bone pain [None]
  - Arthralgia [None]
  - Paraesthesia [None]
  - Blister [None]
  - Anger [None]
  - Constipation [None]
  - Nausea [None]
  - Mood swings [None]
  - Pain in jaw [None]
  - Muscular weakness [None]
  - Muscle twitching [None]
  - Fatigue [None]
  - Asthma [None]
  - Myalgia [None]
  - Muscle spasms [None]
  - Toothache [None]
  - Hot flush [None]
  - Swelling face [None]
  - Joint swelling [None]
  - Asthenia [None]
  - Urticaria [None]

NARRATIVE: CASE EVENT DATE: 20190315
